FAERS Safety Report 4956560-5 (Version None)
Quarter: 2006Q1

REPORT INFORMATION
  Report Type: 
  Country: None (occurrence: None)
  Receive Date: 20060329
  Receipt Date: 20050429
  Transmission Date: 20060701
  Serious: Yes (Hospitalization, Disabling)
  Sender: FDA-Public Use
  Company Number: US-MERCK-0505USA00096

PATIENT
  Age: 57 Year
  Sex: Female
  Weight: 80 kg

DRUGS (2)
  1. VIOXX [Suspect]
     Indication: ARTHRALGIA
     Route: 048
     Dates: start: 20000101, end: 20020101
  2. ASPIRIN [Concomitant]
     Route: 065

REACTIONS (2)
  - THROMBOSIS [None]
  - TRANSIENT ISCHAEMIC ATTACK [None]
